FAERS Safety Report 5414950-0 (Version None)
Quarter: 2007Q3

REPORT INFORMATION
  Report Type: 
  Country: None (occurrence: None)
  Receive Date: 20070813
  Receipt Date: 20070813
  Transmission Date: 20080115
  Serious: Yes (Other)
  Sender: FDA-Public Use
  Company Number: None

PATIENT
  Age: 48 Year
  Sex: Male
  Weight: 90.7194 kg

DRUGS (1)
  1. LAMICTAL [Suspect]
     Indication: EPILEPSY
     Dosage: 2 X MOUTH
     Route: 048
     Dates: start: 20040301, end: 20040601

REACTIONS (6)
  - DIZZINESS [None]
  - DYSARTHRIA [None]
  - GRAND MAL CONVULSION [None]
  - LETHARGY [None]
  - NAUSEA [None]
  - VOMITING PROJECTILE [None]
